FAERS Safety Report 15693517 (Version 1)
Quarter: 2018Q4

REPORT INFORMATION
  Report Type: Spontaneous
  Country: US (occurrence: US)
  Receive Date: 20181126
  Receipt Date: 20181126
  Transmission Date: 20190205
  Serious: Yes (Other)
  Sender: FDA-Public Use
  Company Number: None

PATIENT
  Sex: Male

DRUGS (2)
  1. HARVONI [Suspect]
     Active Substance: LEDIPASVIR\SOFOSBUVIR
     Indication: HEPATITIS VIRAL
     Dosage: ?          OTHER DOSE:90/400 MG;?
     Route: 048
     Dates: start: 201810
  2. HARVONI [Suspect]
     Active Substance: LEDIPASVIR\SOFOSBUVIR
     Indication: HEPATITIS C
     Dosage: ?          OTHER DOSE:90/400 MG;?
     Route: 048
     Dates: start: 201810

REACTIONS (4)
  - Fall [None]
  - Nasal injury [None]
  - Dizziness [None]
  - Product dose omission [None]
